FAERS Safety Report 11229041 (Version 1)
Quarter: 2015Q2

REPORT INFORMATION
  Report Type: Spontaneous
  Country: US (occurrence: US)
  Receive Date: 20150630
  Receipt Date: 20150630
  Transmission Date: 20150821
  Serious: No
  Sender: FDA-Public Use
  Company Number: US-PFIZER INC-2015212782

PATIENT
  Age: 63 Year
  Sex: Male
  Weight: 79 kg

DRUGS (3)
  1. LIPITOR [Suspect]
     Active Substance: ATORVASTATIN CALCIUM
     Indication: BLOOD CHOLESTEROL INCREASED
     Dosage: 10 MG, 1X/DAY
     Dates: end: 2015
  2. FINACEA [Concomitant]
     Active Substance: AZELAIC ACID
     Indication: SKIN DISORDER
     Dosage: UNK
  3. CLEOCIN T [Concomitant]
     Active Substance: CLINDAMYCIN PHOSPHATE
     Indication: SKIN DISORDER
     Dosage: UNK

REACTIONS (2)
  - Enuresis [Recovering/Resolving]
  - Hypertonic bladder [Recovering/Resolving]
